FAERS Safety Report 26179695 (Version 1)
Quarter: 2025Q4

REPORT INFORMATION
  Report Type: Spontaneous
  Country: US (occurrence: US)
  Receive Date: 20251219
  Receipt Date: 20251219
  Transmission Date: 20260118
  Serious: No
  Sender: FERRING
  Company Number: US-FERRINGPH-2025FE05679

PATIENT
  Age: 48 Year
  Sex: Female
  Weight: 86 kg

DRUGS (6)
  1. REBYOTA [Suspect]
     Active Substance: DONOR HUMAN STOOL
     Indication: Clostridium difficile infection
     Dosage: 150 ML, ONCE/SINGLE
     Route: 054
     Dates: start: 20250919, end: 20250919
  2. BACLOFEN [Concomitant]
     Active Substance: BACLOFEN
     Indication: Muscle spasticity
     Dosage: 200 MG, 3 TIMES DAILY
     Route: 048
  3. LEXAPRO [Concomitant]
     Active Substance: ESCITALOPRAM OXALATE
     Dosage: 10 MG, DAILY
     Route: 048
  4. GABAPENTIN [Concomitant]
     Active Substance: GABAPENTIN
     Indication: Neuralgia
     Dosage: 600 MG, 3 TIMES DAILY
     Route: 048
  5. VANCOMYCIN [Concomitant]
     Active Substance: VANCOMYCIN
     Indication: Clostridium difficile infection
     Dosage: 125 MG, DAILY
     Route: 048
     Dates: start: 20250807, end: 20250914
  6. OCREVUS [Concomitant]
     Active Substance: OCRELIZUMAB
     Indication: Multiple sclerosis
     Dosage: 920-3200 MG EVERY 6 MONTHS
     Route: 058

REACTIONS (4)
  - Pyrexia [Not Recovered/Not Resolved]
  - Vomiting [Not Recovered/Not Resolved]
  - Diarrhoea [Not Recovered/Not Resolved]
  - Nausea [Not Recovered/Not Resolved]

NARRATIVE: CASE EVENT DATE: 20250920
